FAERS Safety Report 20909603 (Version 6)
Quarter: 2022Q3

REPORT INFORMATION
  Report Type: Spontaneous
  Country: JP (occurrence: JP)
  Receive Date: 20220603
  Receipt Date: 20220805
  Transmission Date: 20221026
  Serious: Yes (Death, Hospitalization, Other)
  Sender: FDA-Public Use
  Company Number: JP-teijin-202200952_FET_P_1

PATIENT
  Age: 53 Year
  Sex: Female
  Weight: 85 kg

DRUGS (14)
  1. FEBUXOSTAT [Suspect]
     Active Substance: FEBUXOSTAT
     Indication: Hyperuricaemia
     Dosage: 10 MILLIGRAM, QD
     Route: 048
     Dates: end: 20220523
  2. PRANLUKAST [Suspect]
     Active Substance: PRANLUKAST
     Indication: Asthma
     Dosage: 225 MILLIGRAM, BID
     Route: 048
     Dates: end: 20220523
  3. AMBROXOL HYDROCHLORIDE [Suspect]
     Active Substance: AMBROXOL HYDROCHLORIDE
     Indication: Asthma
     Dosage: 15 MILLIGRAM, TID
     Route: 048
     Dates: end: 20220523
  4. TRAZODONE HYDROCHLORIDE [Suspect]
     Active Substance: TRAZODONE HYDROCHLORIDE
     Indication: Panic disorder
     Dosage: 25 MILLIGRAM, QD
     Route: 048
     Dates: end: 20220523
  5. DULOXETINE [Suspect]
     Active Substance: DULOXETINE
     Indication: Panic disorder
     Dosage: 40 MILLIGRAM, QD
     Route: 048
     Dates: end: 20220523
  6. AMLODIPINE [Concomitant]
     Active Substance: AMLODIPINE BESYLATE
     Indication: Hypertension
     Dosage: 2.5 MILLIGRAM, QD
     Route: 048
     Dates: end: 20220525
  7. CARBOCYSTEINE [Concomitant]
     Active Substance: CARBOCYSTEINE
     Indication: Asthma
     Dosage: 500 MILLIGRAM, TID
     Route: 048
     Dates: end: 20220525
  8. FUROSEMIDE [Concomitant]
     Active Substance: FUROSEMIDE
     Dosage: 20 MILLIGRAM, QD
     Route: 048
     Dates: end: 20220525
  9. SPIRONOLACTONE [Concomitant]
     Active Substance: SPIRONOLACTONE
     Dosage: 25 MILLIGRAM, QD
     Route: 048
     Dates: end: 20220525
  10. Budeforu [Concomitant]
     Indication: Asthma
     Dosage: 3 DOSAGE FORM, BID
     Route: 055
     Dates: end: 20220525
  11. ZOLPIDEM TARTRATE [Concomitant]
     Active Substance: ZOLPIDEM TARTRATE
     Dosage: 10 MILLIGRAM, QD
     Route: 048
     Dates: end: 20220525
  12. MAGNESIUM OXIDE [Concomitant]
     Active Substance: MAGNESIUM OXIDE
     Indication: Constipation
     Dosage: 330 MILLIGRAM, TID
     Route: 048
     Dates: end: 20220525
  13. ETIZOLAM [Concomitant]
     Active Substance: ETIZOLAM
     Indication: Panic disorder
     Dosage: 0.5 MILLIGRAM, TID
     Route: 048
     Dates: end: 20220525
  14. THEOPHYLLINE [Concomitant]
     Active Substance: THEOPHYLLINE
     Dosage: 200 MILLIGRAM, BID
     Route: 048

REACTIONS (3)
  - Drug-induced liver injury [Fatal]
  - Pyrexia [Unknown]
  - Decreased appetite [Unknown]

NARRATIVE: CASE EVENT DATE: 20220520
